FAERS Safety Report 17805870 (Version 5)
Quarter: 2020Q2

REPORT INFORMATION
  Report Type: Report from Study
  Country: RU (occurrence: RU)
  Receive Date: 20200520
  Receipt Date: 20200611
  Transmission Date: 20200714
  Serious: Yes (Life-Threatening, Hospitalization, Other)
  Sender: FDA-Public Use
  Company Number: RU-BRISTOL-MYERS SQUIBB COMPANY-BMS-2020-039607

PATIENT
  Age: 78 Year
  Sex: Male

DRUGS (4)
  1. NIVOLUMAB [Suspect]
     Active Substance: NIVOLUMAB
     Indication: TRANSITIONAL CELL CARCINOMA
     Dosage: 360 MILLIGRAM, Q3WK
     Route: 042
     Dates: start: 20200313, end: 20200514
  2. FERRUM LEK [DEXTRIFERRON] [Concomitant]
     Active Substance: DEXTRIFERRON
     Indication: ANAEMIA
     Dosage: 400 MILLIGRAM
     Route: 065
     Dates: start: 20200317
  3. BEMPEGALDESLEUKIN [Suspect]
     Active Substance: BEMPEGALDESLEUKIN
     Indication: TRANSITIONAL CELL CARCINOMA
     Dosage: 0.44 MILLIGRAM, Q3WK
     Route: 042
     Dates: start: 20200313
  4. CANEPHRON [HERBAL EXTRACT NOS] [Concomitant]
     Indication: PYELONEPHRITIS CHRONIC
     Dosage: 18+18+18 MG,  BID
     Route: 048
     Dates: start: 20200325

REACTIONS (1)
  - Type 2 diabetes mellitus [Recovered/Resolved with Sequelae]

NARRATIVE: CASE EVENT DATE: 20200513
